FAERS Safety Report 17271807 (Version 1)
Quarter: 2020Q1

REPORT INFORMATION
  Report Type: Spontaneous
  Country: US (occurrence: US)
  Receive Date: 20191223
  Receipt Date: 20191223
  Transmission Date: 20200409
  Serious: No
  Sender: FDA-Public Use
  Company Number: None

PATIENT
  Age: 65 Year
  Sex: Female

DRUGS (19)
  1. CRESTOR [Concomitant]
     Active Substance: ROSUVASTATIN CALCIUM
  2. IMDUR [Concomitant]
     Active Substance: ISOSORBIDE MONONITRATE
  3. LASIX [Concomitant]
     Active Substance: FUROSEMIDE
  4. PREDNISONE. [Concomitant]
     Active Substance: PREDNISONE
  5. NITROSTAT [Concomitant]
     Active Substance: NITROGLYCERIN
  6. ABILIFY [Concomitant]
     Active Substance: ARIPIPRAZOLE
  7. VITAMIN D [Concomitant]
     Active Substance: VITAMIN D NOS
  8. LEVOTHYROXIN [Concomitant]
     Active Substance: LEVOTHYROXINE
  9. MYRBETRIQ [Concomitant]
     Active Substance: MIRABEGRON
  10. LEXAPRO [Concomitant]
     Active Substance: ESCITALOPRAM OXALATE
  11. CLONAZEPAM. [Concomitant]
     Active Substance: CLONAZEPAM
  12. ALLOPURINOL. [Concomitant]
     Active Substance: ALLOPURINOL
  13. IBUPROFEN. [Concomitant]
     Active Substance: IBUPROFEN
  14. ACTEMRA [Suspect]
     Active Substance: TOCILIZUMAB
     Indication: TEMPORAL ARTERITIS
     Dosage: ?          OTHER DOSE:162/0.9 MG/ML;?
     Route: 058
     Dates: start: 20191220
  15. ASPIRIN EC [Concomitant]
     Active Substance: ASPIRIN
  16. OZEMPIC [Concomitant]
     Active Substance: SEMAGLUTIDE
  17. ZOLOFT [Concomitant]
     Active Substance: SERTRALINE HYDROCHLORIDE
  18. BUPROPION. [Concomitant]
     Active Substance: BUPROPION
  19. PRAZOSIN HCL [Concomitant]
     Active Substance: PRAZOSIN HYDROCHLORIDE

REACTIONS (1)
  - Nausea [None]
